FAERS Safety Report 7578393-6 (Version None)
Quarter: 2011Q2

REPORT INFORMATION
  Report Type: 
  Country: None (occurrence: None)
  Receive Date: 20110628
  Receipt Date: 20110620
  Transmission Date: 20111010
  Serious: Yes (Hospitalization)
  Sender: FDA-Public Use
  Company Number: DE-MEDIMMUNE-MEDI-0013297

PATIENT
  Sex: Female
  Weight: 2.092 kg

DRUGS (3)
  1. SYNAGIS [Suspect]
     Route: 030
     Dates: start: 20110405, end: 20110405
  2. SYNAGIS [Suspect]
     Route: 030
     Dates: start: 20101213, end: 20110307
  3. SYNAGIS [Suspect]
     Route: 030
     Dates: start: 20110502, end: 20110502

REACTIONS (2)
  - BRONCHOPNEUMONIA [None]
  - BRONCHITIS [None]
